FAERS Safety Report 12582920 (Version 1)
Quarter: 2016Q3

REPORT INFORMATION
  Report Type: Spontaneous
  Country: IT (occurrence: IT)
  Receive Date: 20160722
  Receipt Date: 20160722
  Transmission Date: 20161109
  Serious: Yes (Other)
  Sender: FDA-Public Use
  Company Number: IT-PFIZER INC-3017461

PATIENT
  Age: 26 Year
  Sex: Female

DRUGS (3)
  1. CEFTRIAXONE SODIUM. [Suspect]
     Active Substance: CEFTRIAXONE SODIUM
     Indication: EAR INFECTION
     Dosage: 1 DF, DAILY
     Route: 030
     Dates: start: 20150806, end: 20150807
  2. CIPROFLOXACIN HCL [Suspect]
     Active Substance: CIPROFLOXACIN HYDROCHLORIDE
     Indication: EAR INFECTION
     Dosage: 1 DF, DAILY
     Route: 048
     Dates: start: 20150806, end: 20150807
  3. INSULIN [Concomitant]
     Active Substance: INSULIN NOS

REACTIONS (3)
  - Dermatitis bullous [Recovering/Resolving]
  - Eyelid oedema [Recovering/Resolving]
  - Hypersensitivity [Recovering/Resolving]

NARRATIVE: CASE EVENT DATE: 20150807
